FAERS Safety Report 8557216-2 (Version None)
Quarter: 2012Q3

REPORT INFORMATION
  Report Type: 
  Country: None (occurrence: None)
  Receive Date: 20120801
  Receipt Date: 20120717
  Transmission Date: 20120928
  Serious: Yes (Hospitalization, Other)
  Sender: FDA-Public Use
  Company Number: AU-ROCHE-1095275

PATIENT
  Age: 69 Year
  Sex: Male

DRUGS (13)
  1. MABTHERA [Suspect]
     Dates: start: 20110901
  2. ELTROMBOPAG [Concomitant]
  3. FCR REGIMEN [Concomitant]
  4. ALEMTUZUMAB [Concomitant]
     Dates: end: 20100101
  5. PENICILLIN [Concomitant]
  6. MABTHERA [Suspect]
     Indication: CHRONIC LYMPHOCYTIC LEUKAEMIA
     Dates: start: 20050801
  7. GCSF OR GMCSF [Concomitant]
  8. MABTHERA [Suspect]
     Dates: start: 20111201
  9. METHYLPREDNISOLONE [Concomitant]
  10. BACTRIM [Concomitant]
  11. MABTHERA [Suspect]
     Dates: start: 20120301
  12. FLUCONAZOLE [Concomitant]
  13. VALGANCICLOVIR [Concomitant]

REACTIONS (11)
  - BRONCHOPULMONARY ASPERGILLOSIS [None]
  - POST HERPETIC NEURALGIA [None]
  - THROMBOCYTOPENIA [None]
  - NEUTROPENIA [None]
  - SEPTIC SHOCK [None]
  - LYMPHADENOPATHY [None]
  - CYTOMEGALOVIRUS VIRAEMIA [None]
  - WEIGHT DECREASED [None]
  - FEBRILE NEUTROPENIA [None]
  - HERPES ZOSTER [None]
  - DISEASE PROGRESSION [None]
